FAERS Safety Report 4944382-0 (Version None)
Quarter: 2006Q1

REPORT INFORMATION
  Report Type: 
  Country: None (occurrence: None)
  Receive Date: 20060315
  Receipt Date: 20051114
  Transmission Date: 20060701
  Serious: Yes (Other)
  Sender: FDA-Public Use
  Company Number: US-MERCK-0511USA02694

PATIENT
  Sex: Female
  Weight: 61 kg

DRUGS (1)
  1. VIOXX [Suspect]
     Indication: RHEUMATOID ARTHRITIS
     Route: 048

REACTIONS (8)
  - ANXIETY [None]
  - CARDIOVASCULAR DISORDER [None]
  - CEREBROVASCULAR ACCIDENT [None]
  - DEEP VEIN THROMBOSIS [None]
  - EMOTIONAL DISTRESS [None]
  - INJURY [None]
  - PAIN [None]
  - RENAL FAILURE [None]
